FAERS Safety Report 9372844 (Version 1)
Quarter: 2013Q2

REPORT INFORMATION
  Report Type: Spontaneous
  Country: IT (occurrence: None)
  Receive Date: 20130610
  Receipt Date: 20130610
  Transmission Date: 20140414
  Serious: Yes (Other)
  Sender: FDA-Public Use
  Company Number: 2013036389

PATIENT
  Sex: Female

DRUGS (1)
  1. IVIG [Suspect]
     Indication: HEART BLOCK CONGENITAL

REACTIONS (3)
  - Abortion spontaneous [None]
  - Exposure during pregnancy [None]
  - Drug ineffective for unapproved indication [None]
